FAERS Safety Report 11049192 (Version 1)
Quarter: 2015Q2

REPORT INFORMATION
  Report Type: Spontaneous
  Country: US (occurrence: US)
  Receive Date: 20150420
  Receipt Date: 20150420
  Transmission Date: 20150821
  Serious: No
  Sender: FDA-Public Use
  Company Number: US-BAYER-2015-152391

PATIENT
  Age: 52 Year
  Sex: Female
  Weight: 45 kg

DRUGS (1)
  1. MIRALAX [Suspect]
     Active Substance: POLYETHYLENE GLYCOL 3350
     Indication: LAXATIVE SUPPORTIVE CARE
     Dosage: 1 U, QD
     Route: 048
     Dates: start: 2009

REACTIONS (4)
  - Inappropriate schedule of drug administration [None]
  - Incorrect drug administration duration [Unknown]
  - Off label use [None]
  - Wrong technique in drug usage process [None]

NARRATIVE: CASE EVENT DATE: 2009
